FAERS Safety Report 5705534-5 (Version None)
Quarter: 2008Q2

REPORT INFORMATION
  Report Type: 
  Country: None (occurrence: None)
  Receive Date: 20080415
  Receipt Date: 20080403
  Transmission Date: 20081010
  Serious: Yes (Hospitalization, Other)
  Sender: FDA-Public Use
  Company Number: US-ROCHE-493717

PATIENT
  Sex: Female
  Weight: 61.2 kg

DRUGS (15)
  1. ACCUTANE [Suspect]
     Route: 065
     Dates: start: 19870601, end: 19870801
  2. ACCUTANE [Suspect]
     Dosage: ACCUTANE 40 MG IN AM AND 20 MG IN PM
     Route: 065
     Dates: start: 19880531
  3. ACCUTANE [Suspect]
     Dosage: ACCUTANE 40 MG IN AM AND 20 MG IN PM
     Route: 065
     Dates: start: 19880602, end: 19880616
  4. ACCUTANE [Suspect]
     Dosage: ACCUTANE 40 MG IN AM AND 20 MG PM
     Route: 065
     Dates: start: 19880726
  5. ACCUTANE [Suspect]
     Dosage: ACCUTANE 40 MG IN AM AND 20 MG IN PM.
     Route: 065
     Dates: start: 19880823
  6. ACCUTANE [Suspect]
     Dosage: INDICATION: CYSTIC ACNE.
     Route: 065
     Dates: start: 19940406, end: 19940912
  7. LEVLEN 28 [Concomitant]
  8. LEVLEN 28 [Concomitant]
  9. RETIN-A [Concomitant]
     Indication: ACNE
     Dates: start: 19830913
  10. CLEOCIN T [Concomitant]
     Dates: start: 19840113
  11. BENZOYL PEROXIDE [Concomitant]
     Dates: start: 19830913
  12. MINOCIN [Concomitant]
     Dates: start: 19860127
  13. LOTRIMIN [Concomitant]
     Dates: start: 19860922
  14. A/T/S [Concomitant]
     Dates: start: 19871102
  15. AMPICILLIN [Concomitant]

REACTIONS (18)
  - ADENOIDECTOMY [None]
  - ANAEMIA [None]
  - CHEST DISCOMFORT [None]
  - COLITIS [None]
  - COLITIS ULCERATIVE [None]
  - DEPRESSED MOOD [None]
  - DRY SKIN [None]
  - INFLAMMATORY BOWEL DISEASE [None]
  - LIP DRY [None]
  - MUSCULOSKELETAL PAIN [None]
  - MYALGIA [None]
  - OSTEOCHONDROMA [None]
  - PROCTITIS [None]
  - PROCTITIS ULCERATIVE [None]
  - RASH [None]
  - SKIN PAPILLOMA [None]
  - TENDONITIS [None]
  - TONSILLECTOMY [None]
